FAERS Safety Report 8796829 (Version 4)
Quarter: 2013Q4

REPORT INFORMATION
  Report Type: Report from Study
  Country: JP (occurrence: JP)
  Receive Date: 20120919
  Receipt Date: 20131223
  Transmission Date: 20140711
  Serious: Yes (Other)
  Sender: FDA-Public Use
  Company Number: JP-VERTEX PHARMACEUTICAL INC.-2012-021434

PATIENT
  Age: 63 Year
  Sex: Female

DRUGS (24)
  1. VX-950 (TELAPREVIR) [Suspect]
     Indication: CHRONIC HEPATITIS C
     Dosage: 2250 MG, QD
     Route: 048
     Dates: start: 20120719, end: 20120912
  2. VX-950 (TELAPREVIR) [Suspect]
     Dosage: 1500 MG, QD
     Route: 048
     Dates: start: 20120913, end: 20120926
  3. REBETOL [Suspect]
     Indication: CHRONIC HEPATITIS C
     Dosage: 800 MG, QD
     Route: 048
     Dates: start: 20120719, end: 20120725
  4. REBETOL [Suspect]
     Dosage: 600 MG, QD
     Route: 048
     Dates: start: 20120726, end: 20120815
  5. REBETOL [Suspect]
     Dosage: 400 MG, QD
     Route: 048
     Dates: start: 20120816, end: 20120912
  6. REBETOL [Suspect]
     Dosage: 200 MG, QD
     Route: 048
     Dates: start: 20120913, end: 20121003
  7. REBETOL [Suspect]
     Dosage: 200 MG, QD
     Route: 048
     Dates: start: 20121129, end: 20121212
  8. REBETOL [Suspect]
     Dosage: 400 MG, QD
     Route: 048
     Dates: start: 20121213, end: 20130102
  9. PEGINTERFERON ALFA-2B [Suspect]
     Indication: CHRONIC HEPATITIS C
     Dosage: 1.2 ?G/KG, QW
     Route: 058
     Dates: start: 20120719, end: 20121012
  10. PEGINTERFERON ALFA-2B [Suspect]
     Dosage: 1.0 ?G/KG, UNK
     Route: 058
     Dates: start: 20121018, end: 20121101
  11. PEGINTERFERON ALFA-2B [Suspect]
     Dosage: 1.2 ?G/KG, QW
     Route: 058
     Dates: start: 20121108, end: 20121227
  12. TERNELIN [Concomitant]
     Dosage: 2 MG, QD
     Route: 048
  13. MUCOSTA [Concomitant]
     Dosage: 300 MG, QD
     Route: 048
  14. POTACOL-R [Concomitant]
     Dosage: 500 ML, QD
     Route: 042
     Dates: start: 20120719, end: 20120801
  15. INTEBAN [Concomitant]
     Dosage: 25/DAY
     Route: 054
     Dates: start: 20120725, end: 20120726
  16. LAXOBERON [Concomitant]
     Dosage: 10 ML, QD
     Route: 048
     Dates: end: 20121018
  17. TAKEPRON [Concomitant]
     Dosage: 15 MG, QD
     Route: 048
  18. LENDORMIN [Concomitant]
     Dosage: 0.25 MG, UNK
     Route: 048
  19. LENDORMIN [Concomitant]
     Dosage: 0.25 MG, QD
     Route: 048
  20. ALESION [Concomitant]
     Dosage: 20 MG, QD
     Route: 048
     Dates: end: 20120926
  21. NU-LOTAN [Concomitant]
     Dosage: 50 MG, QD
     Route: 048
     Dates: end: 20120926
  22. ALOSENN [Concomitant]
     Dosage: 0.5 G, QD
     Route: 048
     Dates: start: 20121108, end: 20121114
  23. ALOSENN [Concomitant]
     Dosage: 1.5 G, QD
     Route: 048
     Dates: start: 20121115, end: 20121121
  24. ALOSENN [Concomitant]
     Dosage: 1.0 G, QD
     Route: 048
     Dates: start: 20121122

REACTIONS (2)
  - Blood urea increased [Recovered/Resolved]
  - Haemoglobin decreased [Recovered/Resolved]
